FAERS Safety Report 12286993 (Version 2)
Quarter: 2016Q2

REPORT INFORMATION
  Report Type: Other
  Country: FR (occurrence: FR)
  Receive Date: 20160420
  Receipt Date: 20160518
  Transmission Date: 20160815
  Serious: Yes (Hospitalization, Other)
  Sender: FDA-Public Use
  Company Number: FR-ASTELLAS-2016US014886

PATIENT
  Age: 66 Year
  Sex: Male
  Weight: 59 kg

DRUGS (10)
  1. CERTICAN [Suspect]
     Active Substance: EVEROLIMUS
     Indication: PROPHYLAXIS AGAINST TRANSPLANT REJECTION
     Dosage: 0.8 MG, TWICE DAILY
     Route: 048
     Dates: start: 20150105, end: 20160325
  2. LASILIX SPECIAL                    /00032601/ [Concomitant]
     Active Substance: FUROSEMIDE
     Indication: PRODUCT USED FOR UNKNOWN INDICATION
     Route: 048
     Dates: start: 20160301
  3. SMECTA                             /07327601/ [Concomitant]
     Indication: DIARRHOEA
     Route: 048
     Dates: start: 20160314, end: 20160326
  4. TIORFAN [Concomitant]
     Active Substance: RACECADOTRIL
     Indication: DIARRHOEA
     Route: 048
     Dates: start: 20160314, end: 20160326
  5. INEXIUM                            /01479302/ [Concomitant]
     Active Substance: ESOMEPRAZOLE MAGNESIUM
     Indication: PROPHYLAXIS
     Route: 048
     Dates: start: 20160314, end: 20160326
  6. KARDEGIC [Concomitant]
     Active Substance: ASPIRIN LYSINE
     Indication: PRODUCT USED FOR UNKNOWN INDICATION
     Route: 048
     Dates: start: 2014
  7. ADVAGRAF [Suspect]
     Active Substance: TACROLIMUS
     Indication: PROPHYLAXIS AGAINST TRANSPLANT REJECTION
     Route: 048
     Dates: end: 20160325
  8. QUESTRAN [Concomitant]
     Active Substance: CHOLESTYRAMINE
     Indication: DYSLIPIDAEMIA
     Route: 048
     Dates: start: 20160218
  9. VITAMINE B1 B6 BAYER [Concomitant]
     Active Substance: PYRIDOXINE HYDROCHLORIDE\THIAMINE HYDROCHLORIDE
     Indication: HYPOVITAMINOSIS
     Route: 048
     Dates: start: 20160218
  10. IMODIUM [Concomitant]
     Active Substance: LOPERAMIDE HYDROCHLORIDE
     Indication: DIARRHOEA
     Route: 048
     Dates: start: 20160218

REACTIONS (5)
  - Dehydration [Unknown]
  - Diarrhoea [Unknown]
  - Acute kidney injury [Recovering/Resolving]
  - Radiation proctitis [Unknown]
  - Thrombotic microangiopathy [Recovering/Resolving]

NARRATIVE: CASE EVENT DATE: 20160314
